FAERS Safety Report 24956755 (Version 2)
Quarter: 2025Q2

REPORT INFORMATION
  Report Type: Spontaneous
  Country: PK (occurrence: PK)
  Receive Date: 20250211
  Receipt Date: 20250407
  Transmission Date: 20250717
  Serious: Yes (Other)
  Sender: PFIZER
  Company Number: PK-PFIZER INC-PV202500014977

PATIENT
  Age: 45 Year
  Sex: Female

DRUGS (8)
  1. RUXIENCE [Suspect]
     Active Substance: RITUXIMAB-PVVR
     Indication: Rheumatoid arthritis
     Route: 042
     Dates: start: 202406
  2. RUXIENCE [Suspect]
     Active Substance: RITUXIMAB-PVVR
     Dates: start: 202407
  3. DELTACORTRIL [Concomitant]
     Active Substance: PREDNISOLONE
  4. SUNNY D [Concomitant]
  5. FOLIC ACID [Concomitant]
     Active Substance: FOLIC ACID
     Dosage: 5 MG, 1X/DAY BEFORE MEAL
  6. NILSTAT [NYSTATIN] [Concomitant]
     Dosage: UNK, 3X/DAY XAPPLY LOCALLY
  7. VOLTRAL [DICLOFENAC DIETHYLAMINE] [Concomitant]
     Dosage: 3X/DAY, X APPLY LOCALLY AT PAIN AREA
  8. COLOFAC [MEBEVERINE HYDROCHLORIDE] [Concomitant]
     Dosage: 1 X TABLETS, 2X/DAY

REACTIONS (10)
  - Glomerular filtration rate decreased [Unknown]
  - Stent placement [Unknown]
  - Red blood cell sedimentation rate increased [Unknown]
  - Haemoglobin decreased [Unknown]
  - Platelet count decreased [Unknown]
  - Blood creatinine increased [Unknown]
  - Protein urine present [Unknown]
  - Blood albumin decreased [Unknown]
  - Hypertension [Unknown]
  - Off label use [Unknown]

NARRATIVE: CASE EVENT DATE: 20240701
